FAERS Safety Report 8007970-3 (Version None)
Quarter: 2011Q4

REPORT INFORMATION
  Report Type: 
  Country: None (occurrence: None)
  Receive Date: 20111227
  Receipt Date: 20111212
  Transmission Date: 20120403
  Serious: Yes (Other)
  Sender: FDA-Public Use
  Company Number: PHHY2011US108865

PATIENT
  Age: 52 Year
  Sex: Female

DRUGS (17)
  1. PREDNISONE [Concomitant]
     Dosage: 30 MG DAILY
  2. PREDNISONE [Concomitant]
     Dosage: 30 MG DAILY
  3. PREDNISONE [Concomitant]
     Dosage: 60 MG DAILY
  4. PREDNISONE [Concomitant]
     Dosage: 10 MG DAILY
  5. MULTI-VITAMINS [Concomitant]
     Dosage: UNK UKN, UNK
  6. ENALAPRIL MALEATE [Concomitant]
     Dosage: 20 MG DAILY
  7. HYDROCHLOROTHIAZIDE [Concomitant]
     Dosage: 25 MG DAILY
  8. PREDNISONE [Concomitant]
     Dosage: 40 MG DAILY
  9. ZOLEDRONIC ACID [Suspect]
     Dosage: YEARLY INFUSIONS X2
     Route: 042
  10. PREDNISONE [Concomitant]
     Dosage: 4 TO 30 MG DAILY
  11. HYDROXYCHLOROQUINE [Concomitant]
     Dosage: 200 MG  THRICE WEEKLY
  12. PREDNISONE [Concomitant]
     Dosage: 7 MG DAILY
  13. PREDNISONE [Concomitant]
     Dosage: 10 MG DAILY
  14. PANTOPRAZOLE [Concomitant]
     Dosage: UNK UKN, UNK
  15. ASPIRIN [Concomitant]
     Dosage: 81 MG DAILY
  16. AZATHIOPRINE [Concomitant]
     Dosage: 100 MG DAILY
  17. CALCIUM WITH VITAMIN D [Concomitant]
     Dosage: UNK UKN, UNK

REACTIONS (10)
  - NEPHROTIC SYNDROME [None]
  - CANDIDIASIS [None]
  - NEPHROPATHY [None]
  - PROTEINURIA [None]
  - MOUTH ULCERATION [None]
  - GLOMERULOSCLEROSIS [None]
  - MUSCULAR WEAKNESS [None]
  - RENAL ISCHAEMIA [None]
  - FAT REDISTRIBUTION [None]
  - INSOMNIA [None]
